FAERS Safety Report 9388858 (Version 1)
Quarter: 2013Q3

REPORT INFORMATION
  Report Type: Spontaneous
  Country: IT (occurrence: IT)
  Receive Date: 20130708
  Receipt Date: 20130708
  Transmission Date: 20140515
  Serious: Yes (Other)
  Sender: FDA-Public Use
  Company Number: IT-PFIZER INC-2013197766

PATIENT
  Age: 64 Year
  Sex: Female

DRUGS (5)
  1. ATORVASTATIN CALCIUM [Suspect]
     Indication: HYPERCHOLESTEROLAEMIA
     Dosage: 10 MG DAILY
     Route: 048
     Dates: start: 20130101, end: 20130622
  2. ATENOLOL [Concomitant]
  3. ACETYLSALICYLIC ACID [Concomitant]
  4. LEVOTHYROXINE SODIUM [Concomitant]
  5. OLMESARTAN MEDOXOMIL [Concomitant]

REACTIONS (3)
  - Blood creatine phosphokinase increased [Recovered/Resolved]
  - Blood creatinine increased [Recovered/Resolved]
  - Muscle spasms [Recovered/Resolved]
